FAERS Safety Report 13052169 (Version 3)
Quarter: 2017Q1

REPORT INFORMATION
  Report Type: Report from Study
  Country: US (occurrence: US)
  Receive Date: 20161221
  Receipt Date: 20170125
  Transmission Date: 20170428
  Serious: Yes (Death, Other)
  Sender: FDA-Public Use
  Company Number: US-ALEXION PHARMACEUTICALS INC.-A201609913

PATIENT
  Sex: Male

DRUGS (1)
  1. SOLIRIS [Suspect]
     Active Substance: ECULIZUMAB
     Indication: HAEMOLYTIC URAEMIC SYNDROME
     Dosage: UNK
     Route: 042

REACTIONS (6)
  - Pancytopenia [Unknown]
  - General physical health deterioration [Fatal]
  - Oxygen consumption decreased [Unknown]
  - Graft versus host disease [Unknown]
  - Blood creatinine increased [Unknown]
  - Gastrointestinal haemorrhage [Unknown]
